FAERS Safety Report 12135812 (Version 1)
Quarter: 2016Q1

REPORT INFORMATION
  Report Type: Report from Study
  Country: US (occurrence: US)
  Receive Date: 20160302
  Receipt Date: 20160302
  Transmission Date: 20160526
  Serious: Yes (Hospitalization)
  Sender: FDA-Public Use
  Company Number: US-BEH-2016059537

PATIENT

DRUGS (1)
  1. ZEMAIRA [Suspect]
     Active Substance: .ALPHA.1-PROTEINASE INHIBITOR HUMAN
     Indication: GRAFT VERSUS HOST DISEASE

REACTIONS (2)
  - Hyperkalaemia [Unknown]
  - Skin infection [Unknown]

NARRATIVE: CASE EVENT DATE: 20141227
